FAERS Safety Report 5967111-0 (Version None)
Quarter: 2008Q4

REPORT INFORMATION
  Report Type: 
  Country: None (occurrence: None)
  Receive Date: 20081125
  Receipt Date: 20081112
  Transmission Date: 20090506
  Serious: Yes (Hospitalization)
  Sender: FDA-Public Use
  Company Number: JP-GENENTECH-271993

PATIENT
  Sex: Female
  Weight: 49 kg

DRUGS (7)
  1. AVASTIN [Suspect]
     Indication: RECTAL CANCER
     Dosage: 245 MG, Q2W
     Route: 042
     Dates: start: 20080902, end: 20081105
  2. ELPLAT [Concomitant]
     Indication: RECTAL CANCER
     Dosage: UNK
     Dates: start: 20080820, end: 20080918
  3. IRINOTECAN HYDROCHLORIDE [Concomitant]
     Indication: RECTAL CANCER
     Dosage: UNK
     Dates: end: 20081105
  4. FLUOROURACIL [Concomitant]
     Indication: RECTAL CANCER
     Dosage: UNK
     Dates: end: 20081107
  5. LEUCOVORIN CALCIUM [Concomitant]
     Indication: RECTAL CANCER
     Dosage: UNK
     Dates: end: 20081105
  6. MUCOSTA [Concomitant]
     Indication: DRUG USE FOR UNKNOWN INDICATION
     Dosage: UNK
     Dates: start: 20080801, end: 20081111
  7. LOXONIN [Concomitant]
     Indication: DRUG USE FOR UNKNOWN INDICATION
     Dosage: UNK
     Dates: start: 20080801, end: 20081111

REACTIONS (1)
  - PERITONITIS [None]
